FAERS Safety Report 24307280 (Version 1)
Quarter: 2024Q3

REPORT INFORMATION
  Report Type: Spontaneous
  Country: CN (occurrence: CN)
  Receive Date: 20240911
  Receipt Date: 20240911
  Transmission Date: 20241016
  Serious: Yes (Hospitalization)
  Sender: NOVARTIS
  Company Number: CN-002147023-NVSC2024CN179380

PATIENT
  Age: 84 Year
  Sex: Female
  Weight: 55 kg

DRUGS (2)
  1. ELTROMBOPAG OLAMINE [Suspect]
     Active Substance: ELTROMBOPAG OLAMINE
     Indication: Immune thrombocytopenia
     Dosage: 50 MG, QD
     Route: 048
     Dates: start: 20240730, end: 20240817
  2. PREDNISONE ACETATE [Concomitant]
     Active Substance: PREDNISONE ACETATE
     Indication: Product used for unknown indication
     Dosage: 5 MG, QD
     Route: 048
     Dates: start: 20240730, end: 20240817

REACTIONS (6)
  - Platelet count increased [Recovering/Resolving]
  - Feeling abnormal [Unknown]
  - Somnolence [Unknown]
  - Antisocial behaviour [Unknown]
  - Oxygen saturation decreased [Unknown]
  - Slow response to stimuli [Unknown]

NARRATIVE: CASE EVENT DATE: 20240809
